FAERS Safety Report 6444332-4 (Version None)
Quarter: 2009Q4

REPORT INFORMATION
  Report Type: 
  Country: None (occurrence: None)
  Receive Date: 20091118
  Receipt Date: 20091111
  Transmission Date: 20100525
  Serious: Yes (Hospitalization)
  Sender: FDA-Public Use
  Company Number: US-BAYER-200935852NA

PATIENT
  Age: 62 Year
  Sex: Male
  Weight: 104 kg

DRUGS (11)
  1. NEXAVAR [Suspect]
     Indication: HEPATIC NEOPLASM MALIGNANT
     Dosage: TOTAL DAILY DOSE: 800 MG  UNIT DOSE: 200 MG
     Route: 048
     Dates: start: 20090925, end: 20091001
  2. AMARYL [Concomitant]
     Dosage: TOTAL DAILY DOSE: 4 MG
     Route: 048
     Dates: start: 20090121
  3. LANTUS [Concomitant]
     Indication: TYPE 2 DIABETES MELLITUS
     Dosage: TOTAL DAILY DOSE: 25 MG
     Route: 058
     Dates: start: 20090514
  4. ZOLOFT [Concomitant]
     Dosage: TOTAL DAILY DOSE: 100 MG
     Route: 048
     Dates: start: 20080121
  5. INDERAL [Concomitant]
     Dosage: TOTAL DAILY DOSE: 120 MG
     Route: 048
     Dates: start: 20080121
  6. DEMADEX [Concomitant]
     Dosage: TOTAL DAILY DOSE: 80 MG
     Route: 048
     Dates: start: 20090514
  7. ZAROXOLYN [Concomitant]
     Dosage: AS USED: 2.5 MG
     Route: 048
  8. ALDACTONE [Concomitant]
     Dosage: TOTAL DAILY DOSE: 100 MG
     Route: 048
     Dates: start: 20090514
  9. GLUCOPHAGE [Concomitant]
     Dosage: TOTAL DAILY DOSE: 1000 MG
     Route: 048
     Dates: start: 20090514
  10. CIPRO [Concomitant]
     Route: 048
  11. HUMALOG [Concomitant]
     Dosage: SLIDING SCALE

REACTIONS (1)
  - HEPATIC ENCEPHALOPATHY [None]
